FAERS Safety Report 4804047-2 (Version None)
Quarter: 2005Q4

REPORT INFORMATION
  Report Type: 
  Country: None (occurrence: None)
  Receive Date: 20051018
  Receipt Date: 20051018
  Transmission Date: 20060501
  Serious: No
  Sender: FDA-Public Use
  Company Number: None

PATIENT
  Age: 77 Year
  Sex: Male
  Weight: 87.5442 kg

DRUGS (1)
  1. FLOMAX [Suspect]
     Indication: URINE FLOW DECREASED
     Dosage: 0.4MG P.O. DAILY
     Route: 048
     Dates: start: 20030101

REACTIONS (3)
  - CATARACT OPERATION COMPLICATION [None]
  - IRIS DISORDER [None]
  - PUPILLARY REFLEX IMPAIRED [None]
